FAERS Safety Report 4415907-9 (Version None)
Quarter: 2004Q3

REPORT INFORMATION
  Report Type: 
  Country: None (occurrence: None)
  Receive Date: 20040805
  Receipt Date: 20040526
  Transmission Date: 20050211
  Serious: No
  Sender: FDA-Public Use
  Company Number: US-GLAXOSMITHKLINE-A0512241A

PATIENT
  Sex: Female

DRUGS (7)
  1. AVANDAMET [Suspect]
     Dosage: 1MG PER DAY
     Route: 048
     Dates: start: 20031101
  2. ATENOLOL [Concomitant]
  3. PROTONIX [Concomitant]
  4. GLUCOTROL [Concomitant]
  5. ATACAND [Concomitant]
  6. GEMFIBROZIL [Concomitant]
  7. UNKNOWN MEDICATION [Concomitant]

REACTIONS (3)
  - FACE OEDEMA [None]
  - GENERALISED OEDEMA [None]
  - WEIGHT INCREASED [None]
